FAERS Safety Report 5265569-6 (Version None)
Quarter: 2007Q1

REPORT INFORMATION
  Report Type: 
  Country: None (occurrence: None)
  Receive Date: 20061213
  Receipt Date: 20040407
  Transmission Date: 20070707
  Serious: Yes (Other)
  Sender: FDA-Public Use
  Company Number: 2004UW07299

PATIENT

DRUGS (2)
  1. IRESSA [Suspect]
     Dosage: 250 MG PO
     Route: 048
  2. PREVACID [Suspect]

REACTIONS (1)
  - DYSPEPSIA [None]
